FAERS Safety Report 7929689-7 (Version None)
Quarter: 2011Q4

REPORT INFORMATION
  Report Type: 
  Country: None (occurrence: None)
  Receive Date: 20111121
  Receipt Date: 20111116
  Transmission Date: 20120403
  Serious: Yes (Hospitalization, Other)
  Sender: FDA-Public Use
  Company Number: US-PFIZER INC-2011280984

PATIENT
  Sex: Female

DRUGS (5)
  1. CHANTIX [Suspect]
     Indication: SMOKING CESSATION THERAPY
     Dosage: 0.5/1MG
     Dates: start: 20071101, end: 20080201
  2. EFFEXOR [Concomitant]
     Indication: DEPRESSION
     Dosage: UNK
     Dates: start: 20010101, end: 20090101
  3. IBUPROFEN [Concomitant]
     Indication: PAIN
     Dosage: UNK
     Dates: start: 20070101
  4. VICODIN [Concomitant]
     Indication: PAIN
     Dosage: UNK
     Dates: start: 20070101
  5. CELEXA [Concomitant]
     Indication: DEPRESSION
     Dosage: UNK
     Dates: start: 20010101, end: 20090101

REACTIONS (5)
  - ANXIETY [None]
  - SUICIDE ATTEMPT [None]
  - DEPRESSION [None]
  - ABNORMAL BEHAVIOUR [None]
  - INTENTIONAL OVERDOSE [None]
